FAERS Safety Report 9979417 (Version 1)
Quarter: 2014Q1

REPORT INFORMATION
  Report Type: Report from Study
  Country: US (occurrence: US)
  Receive Date: 20140306
  Receipt Date: 20140306
  Transmission Date: 20141002
  Serious: Yes (Other)
  Sender: FDA-Public Use
  Company Number: US-ABBVIE-13P-163-1173006-00

PATIENT
  Sex: Female
  Weight: 93.98 kg

DRUGS (8)
  1. HUMIRA [Suspect]
     Indication: RHEUMATOID ARTHRITIS
     Dates: start: 2004
  2. CARDIZEM [Concomitant]
     Indication: BLOOD PRESSURE
  3. LASIX [Concomitant]
     Indication: BLOOD PRESSURE
  4. SYNTHROID [Concomitant]
     Indication: HYPOTHYROIDISM
  5. OXYCONTIN [Concomitant]
     Indication: SPINAL FUSION SURGERY
  6. NORCO [Concomitant]
     Indication: SPINAL FUSION SURGERY
  7. ASPIRIN [Concomitant]
     Indication: SPINAL FUSION SURGERY
  8. NSAIDS [Concomitant]
     Indication: SPINAL FUSION SURGERY

REACTIONS (2)
  - Basal cell carcinoma [Recovered/Resolved]
  - Skin haemorrhage [Recovered/Resolved]
